FAERS Safety Report 9945495 (Version 1)
Quarter: 2014Q1

REPORT INFORMATION
  Report Type: Report from Study
  Country: US (occurrence: US)
  Receive Date: 20140303
  Receipt Date: 20140303
  Transmission Date: 20141002
  Serious: No
  Sender: FDA-Public Use
  Company Number: US-ABBVIE-13P-163-1049594-00

PATIENT
  Sex: Male
  Weight: 114.41 kg

DRUGS (2)
  1. HUMIRA [Suspect]
     Indication: RHEUMATOID ARTHRITIS
     Dates: start: 20110601, end: 20130105
  2. UNNAMED MEDICATION [Concomitant]
     Indication: HYPERTENSION

REACTIONS (1)
  - Drug ineffective [Not Recovered/Not Resolved]
